FAERS Safety Report 8836987 (Version 1)
Quarter: 2012Q4

REPORT INFORMATION
  Report Type: Spontaneous
  Country: US (occurrence: None)
  Receive Date: 20121011
  Receipt Date: 20121011
  Transmission Date: 20130627
  Serious: Yes (Hospitalization)
  Sender: FDA-Public Use
  Company Number: None

PATIENT
  Age: 41 Year
  Sex: Male
  Weight: 87 kg

DRUGS (6)
  1. PHENYTOIN [Suspect]
     Indication: CONVULSIVE DISORDER
     Dosage: prior to admission 400 mg qhs po
     Route: 048
  2. ALBUTEROL/IPRATROPIUM [Concomitant]
  3. FLUTICASONE/SALMETEROL [Concomitant]
  4. QUETIAPINE [Concomitant]
  5. BUSPIRONE [Concomitant]
  6. CHOLECALCIFEROL [Concomitant]

REACTIONS (7)
  - Incorrect dose administered [None]
  - Dizziness [None]
  - Dizziness [None]
  - Dysgeusia [None]
  - Gait disturbance [None]
  - Convulsion [None]
  - Refusal of treatment by patient [None]
